FAERS Safety Report 20683852 (Version 1)
Quarter: 2022Q2

REPORT INFORMATION
  Report Type: Spontaneous
  Country: US (occurrence: None)
  Receive Date: 20220407
  Receipt Date: 20220407
  Transmission Date: 20220721
  Serious: Yes (Hospitalization)
  Sender: FDA-Public Use
  Company Number: US-FRESENIUS KABI-FK202204045

PATIENT
  Age: 50 Year
  Sex: Female

DRUGS (17)
  1. MESNA [Suspect]
     Active Substance: MESNA
     Indication: Acute lymphocytic leukaemia
     Dosage: 300MG/M2 IV DAILY OVER 24 HOURS FOR 3 DAYS ON DAYS 1-3, INTRAVENOUS
     Route: 042
  2. INOTUZUMAB OZOGAMICIN [Suspect]
     Active Substance: INOTUZUMAB OZOGAMICIN
     Indication: Acute lymphocytic leukaemia
     Dosage: REGIMEN A: IV OVER 1 HOUR ON DAYS 2 AND 8 OF CYCLES 1 AND 3 (APPROXIMATE), INTRAVENOUS
     Route: 042
     Dates: start: 20210117
  3. INOTUZUMAB OZOGAMICIN [Suspect]
     Active Substance: INOTUZUMAB OZOGAMICIN
     Dosage: REGIMEN:B IV ON DAYS 2 AND 8 OF CYCLES 2 AND 4 (APPROXIMATE).
     Route: 042
  4. INOTUZUMAB OZOGAMICIN [Suspect]
     Active Substance: INOTUZUMAB OZOGAMICIN
     Route: 065
     Dates: start: 20210117, end: 20210421
  5. METHOTREXATE SODIUM [Suspect]
     Active Substance: METHOTREXATE SODIUM
     Indication: Acute lymphocytic leukaemia
     Dosage: REGIMEN B: 50 MG/M2 IV OVER 2HRS ON DAY 1 THEN, INTRAVENOUS
     Route: 042
  6. METHOTREXATE SODIUM [Suspect]
     Active Substance: METHOTREXATE SODIUM
     Dosage: REGIMEN B: 200 MG/M2 CONTINUOUS INFUSION OVER 22 HOURS ON DAY 1
     Route: 065
  7. RITUXIMAB [Suspect]
     Active Substance: RITUXIMAB
     Indication: Acute lymphocytic leukaemia
     Dosage: REGIMEN A: 375MG/M2 IV ON DAY 2 AND DAY 8 OF CYCLES 1 AND 3, INTRAVENOUS
     Route: 042
  8. RITUXIMAB [Suspect]
     Active Substance: RITUXIMAB
     Dosage: REGIMEN B: 375 MG/M2 IV ON DAY 2 AND 8 OF CYCLES 2 AND 4, INTRAVENOUS
     Route: 042
  9. VINCRISTINE SULFATE [Suspect]
     Active Substance: VINCRISTINE SULFATE
     Indication: Acute lymphocytic leukaemia
     Dosage: REGIMEN A: 2MG IV DAY 1 AND DAY 8 (APPROXIMATE), INTRAVENOUS
     Route: 042
  10. CYTARABINE [Suspect]
     Active Substance: CYTARABINE
     Indication: Acute lymphocytic leukaemia
     Dosage: 0.5 G/M2 IV OVER 3 HOURS TWICE A DAY X 4 DOSES ON DAYS 2 AND 3., INTRAVENOUS
     Route: 042
  11. PEGFILGRASTIM [Suspect]
     Active Substance: PEGFILGRASTIM
     Indication: Acute lymphocytic leukaemia
     Dosage: REGIMEN A: 6MG SUBQ(OR FILGRASTIM 5-10 MCG/KG DAILY) ON DAY 4 UNTIL RECOVERY OF GRANULOCYTE COUNT.
     Route: 058
  12. PEGFILGRASTIM [Suspect]
     Active Substance: PEGFILGRASTIM
     Dosage: 6 MG CYCLIC (REGIMEN B: (OR FILGRASTIM 5-10 MCG/KG DAILY) ON DAY 4 UNTIL RECOVERY OF GRANULOCYTE COU
     Route: 058
  13. CYCLOPHOSPHAMIDE [Suspect]
     Active Substance: CYCLOPHOSPHAMIDE
     Indication: Acute lymphocytic leukaemia
     Dosage: REGIMEN A: 150MG/M2 IV OVER 3 HOURS TWICE A DAY ON DAYS 1-3, INTRAVENOUS
     Route: 042
  14. DEXAMETHASONE [Suspect]
     Active Substance: DEXAMETHASONE
     Indication: Acute lymphocytic leukaemia
     Dosage: REGIMEN A: 20MG IV DAILY FOR 4 DAYS ON DAYS 1-4 AND DAYS 11-14 (APPROXIMATE), INTRAVENOUS
     Route: 042
  15. BLINATUMOMAB [Suspect]
     Active Substance: BLINATUMOMAB
     Indication: Acute lymphocytic leukaemia
     Dosage: REGIMEN C: 9UG/DAY CONTINUOUS INFUSION DAYS 1-4 (CYCLE 5 ONLY)
  16. BLINATUMOMAB [Suspect]
     Active Substance: BLINATUMOMAB
     Dosage: REGIMEN C: 28UG/DAY CONTINUOUS INFUSION DAYS 4-29 (CYCLE 5 ONLY))
  17. BLINATUMOMAB [Suspect]
     Active Substance: BLINATUMOMAB
     Dosage: REGIMEN C: 28UG/DAY CONTINUOUS INFUSION DAYS 1-29 (CYCLES 6, 11 AND 12)

REACTIONS (1)
  - Pyrexia [Recovered/Resolved]

NARRATIVE: CASE EVENT DATE: 20220119
